FAERS Safety Report 4977723-9 (Version None)
Quarter: 2006Q1

REPORT INFORMATION
  Report Type: 
  Country: None (occurrence: None)
  Receive Date: 20060215
  Receipt Date: 20050607
  Transmission Date: 20060701
  Serious: Yes (Death)
  Sender: FDA-Public Use
  Company Number: MC200500503

PATIENT
  Age: 80 Year
  Sex: Female
  Weight: 61.2 kg

DRUGS (5)
  1. ANGIOMAX [Suspect]
     Dosage: 0.75 MG/KG, BOLUS, IV BOLUS
     Route: 040
     Dates: start: 20050527, end: 20050527
  2. ANGIOMAX [Suspect]
     Dosage: 1.75 MG/KG, HR, INTRAVENOUS
     Route: 042
     Dates: start: 20050527, end: 20050527
  3. INTEGRILIN [Suspect]
     Dates: start: 20050527, end: 20050527
  4. ASPIRIN [Concomitant]
  5. PLAVIX [Concomitant]

REACTIONS (1)
  - HAEMORRHAGE INTRACRANIAL [None]
